FAERS Safety Report 7688760-8 (Version None)
Quarter: 2011Q3

REPORT INFORMATION
  Report Type: 
  Country: None (occurrence: None)
  Receive Date: 20110811
  Receipt Date: 20110727
  Transmission Date: 20111222
  Serious: Yes (Other)
  Sender: FDA-Public Use
  Company Number: TPA2011A04472

PATIENT
  Age: 75 Year
  Sex: Male

DRUGS (1)
  1. EDARBI [Suspect]
     Indication: HYPERTENSION
     Dosage: 80 MG
     Dates: start: 20110101

REACTIONS (1)
  - TRANSIENT ISCHAEMIC ATTACK [None]
